FAERS Safety Report 12721364 (Version 1)
Quarter: 2016Q3

REPORT INFORMATION
  Report Type: Other
  Country: AU (occurrence: AU)
  Receive Date: 20160907
  Receipt Date: 20160907
  Transmission Date: 20161109
  Serious: Yes (Other)
  Sender: FDA-Public Use
  Company Number: AU-ENDO PHARMACEUTICALS INC-2016-005436

PATIENT
  Age: 17 Year
  Sex: Male
  Weight: 88.4 kg

DRUGS (5)
  1. METFORMIN HYDROCHLORIDE TABLETS 500MG [Suspect]
     Active Substance: METFORMIN HYDROCHLORIDE
     Route: 048
  2. METFORMIN HYDROCHLORIDE TABLETS 500MG [Suspect]
     Active Substance: METFORMIN HYDROCHLORIDE
     Route: 048
  3. METFORMIN HYDROCHLORIDE TABLETS 500MG [Suspect]
     Active Substance: METFORMIN HYDROCHLORIDE
     Route: 048
  4. CLOZAPINE. [Concomitant]
     Active Substance: CLOZAPINE
     Indication: SCHIZOPHRENIA
  5. METFORMIN HYDROCHLORIDE TABLETS 500MG [Suspect]
     Active Substance: METFORMIN HYDROCHLORIDE
     Indication: WEIGHT INCREASED
     Route: 048

REACTIONS (1)
  - Pancreatitis relapsing [Recovered/Resolved]
